FAERS Safety Report 7175886-0 (Version None)
Quarter: 2010Q4

REPORT INFORMATION
  Report Type: 
  Country: None (occurrence: None)
  Receive Date: 20101220
  Receipt Date: 20100518
  Transmission Date: 20110411
  Serious: No
  Sender: FDA-Public Use
  Company Number: US-AMGEN-TCS403888

PATIENT

DRUGS (18)
  1. ENBREL [Suspect]
     Indication: PSORIASIS
     Dosage: 50 MG, 2 TIMES/WK
     Route: 058
     Dates: start: 20100218, end: 20100405
  2. INSULIN [Concomitant]
  3. FLUTICASONE/SALMETEROL [Concomitant]
  4. WARFARIN SODIUM [Concomitant]
  5. TERAZOSIN HYDROCHLORIDE [Concomitant]
  6. DIGOXIN [Concomitant]
  7. ZOLPIDEM TARTRATE [Concomitant]
  8. ACETYLSALICYLIC ACID [Concomitant]
  9. DULOXETIME HYDROCHLORIDE [Concomitant]
  10. BUSPIRONE HYDROCHLORIDE [Concomitant]
  11. ATENOLOL [Concomitant]
  12. SIMVASTATIN [Concomitant]
  13. CLONAZEPAM [Concomitant]
  14. PANTOPRAZOLE SODIUM [Concomitant]
  15. ACETAMINOPHEN AND HYDROCODONE BITARTRATE [Concomitant]
  16. ROPINIROLE HYDROCHLORIDE [Concomitant]
  17. GUAIFENESIN [Concomitant]
  18. VITAMINS [Concomitant]

REACTIONS (12)
  - DRUG HYPERSENSITIVITY [None]
  - DRY MOUTH [None]
  - DYSPNOEA [None]
  - HEADACHE [None]
  - HYPOAESTHESIA [None]
  - HYPOAESTHESIA ORAL [None]
  - NAUSEA [None]
  - OEDEMA PERIPHERAL [None]
  - OROPHARYNGEAL PAIN [None]
  - PSORIASIS [None]
  - STOMATITIS [None]
  - VISION BLURRED [None]
